FAERS Safety Report 6484192-9 (Version None)
Quarter: 2009Q4

REPORT INFORMATION
  Report Type: 
  Country: None (occurrence: None)
  Receive Date: 20091209
  Receipt Date: 20090522
  Transmission Date: 20100525
  Serious: No
  Sender: FDA-Public Use
  Company Number: US-AMGEN-KDL348440

PATIENT
  Sex: Female
  Weight: 54.9 kg

DRUGS (1)
  1. ENBREL [Suspect]
     Indication: JUVENILE ARTHRITIS
     Route: 058
     Dates: start: 20080822

REACTIONS (4)
  - FATIGUE [None]
  - MALAISE [None]
  - NASOPHARYNGITIS [None]
  - SINUSITIS [None]
